FAERS Safety Report 9610410 (Version 2)
Quarter: 2013Q4

REPORT INFORMATION
  Report Type: Spontaneous
  Country: GB (occurrence: GB)
  Receive Date: 20131009
  Receipt Date: 20131011
  Transmission Date: 20140711
  Serious: Yes (Hospitalization, Other)
  Sender: FDA-Public Use
  Company Number: GB-PFIZER INC-2013283491

PATIENT
  Age: 40 Year
  Sex: Female

DRUGS (2)
  1. METHYLPREDNISOLONE [Suspect]
     Indication: MULTIPLE SCLEROSIS RELAPSE
     Dosage: 500 MG, UNK
     Route: 048
  2. COPAXONE [Suspect]
     Indication: MULTIPLE SCLEROSIS
     Dosage: 20 MG, 1X/DAY
     Route: 058
     Dates: start: 20130815

REACTIONS (5)
  - Swollen tongue [Recovered/Resolved]
  - Multiple sclerosis relapse [Unknown]
  - Tongue injury [Recovered/Resolved]
  - Hypoaesthesia [Unknown]
  - Hypoaesthesia [Unknown]
